FAERS Safety Report 6613834-X (Version None)
Quarter: 2010Q1

REPORT INFORMATION
  Report Type: 
  Country: None (occurrence: None)
  Receive Date: 20100304
  Receipt Date: 20100222
  Transmission Date: 20100710
  Serious: Yes (Hospitalization)
  Sender: FDA-Public Use
  Company Number: AU-ABBOTT-10P-008-0629150-00

PATIENT
  Age: 89 Year
  Sex: Male

DRUGS (9)
  1. CLARITHROMYCIN [Suspect]
     Indication: DRUG USE FOR UNKNOWN INDICATION
     Dosage: 1 G QD
     Dates: start: 20091105, end: 20091112
  2. NEXIUM [Suspect]
     Indication: DRUG USE FOR UNKNOWN INDICATION
     Dosage: 8 DOSE UNSPECIFIED DAILY
     Route: 048
     Dates: start: 20091105, end: 20091112
  3. ESOMEPRAZOLE MAGNESIUM [Suspect]
     Indication: DRUG USE FOR UNKNOWN INDICATION
     Dosage: 2 DOSE UNSPECIFIED DAILY
     Dates: start: 20091105, end: 20091112
  4. AVAPRO [Concomitant]
     Indication: DRUG USE FOR UNKNOWN INDICATION
  5. FERRO [Concomitant]
     Indication: DRUG USE FOR UNKNOWN INDICATION
  6. LANOXIN [Concomitant]
     Indication: DRUG USE FOR UNKNOWN INDICATION
  7. MAREVAN [Concomitant]
     Indication: DRUG USE FOR UNKNOWN INDICATION
  8. SOMAC [Concomitant]
     Indication: DRUG USE FOR UNKNOWN INDICATION
  9. LORATADINE [Concomitant]
     Indication: DRUG USE FOR UNKNOWN INDICATION

REACTIONS (2)
  - RASH MACULAR [None]
  - URTICARIA [None]
